FAERS Safety Report 5647953-1 (Version None)
Quarter: 2008Q1

REPORT INFORMATION
  Report Type: 
  Country: None (occurrence: None)
  Receive Date: 20080229
  Receipt Date: 20080222
  Transmission Date: 20080703
  Serious: Yes (Death)
  Sender: FDA-Public Use
  Company Number: L08-USA-00315-40

PATIENT
  Age: 44 Year
  Sex: Male

DRUGS (9)
  1. MEMANTINE HCL [Suspect]
  2. ROPINIROLE HCL [Suspect]
  3. LAMOTRIGINE [Suspect]
  4. DONEPEZIL HCL [Suspect]
  5. TACRINE [Suspect]
  6. AMANTADINE HCL [Suspect]
  7. METAXALONE [Suspect]
  8. CLONAZEPAM [Concomitant]
  9. BROMOCRIPTINE MESYLATE [Suspect]

REACTIONS (1)
  - MULTIPLE DRUG OVERDOSE INTENTIONAL [None]
